FAERS Safety Report 13913925 (Version 1)
Quarter: 2017Q3

REPORT INFORMATION
  Report Type: Spontaneous
  Country: US (occurrence: US)
  Receive Date: 20170828
  Receipt Date: 20170828
  Transmission Date: 20171127
  Serious: No
  Sender: FDA-Public Use
  Company Number: US-ROCHE-1140751

PATIENT
  Sex: Female

DRUGS (4)
  1. NUTROPIN [Suspect]
     Active Substance: SOMATROPIN
     Indication: GROWTH FAILURE
     Route: 058
     Dates: start: 199803
  2. TACROLIMUS. [Concomitant]
     Active Substance: TACROLIMUS
     Route: 048
  3. PREDNISONE. [Concomitant]
     Active Substance: PREDNISONE
     Route: 065
  4. CYCLOVIRAN [Concomitant]
     Active Substance: ACYCLOVIR
     Route: 042

REACTIONS (1)
  - Growth retardation [Unknown]
